FAERS Safety Report 16524527 (Version 3)
Quarter: 2019Q3

REPORT INFORMATION
  Report Type: Spontaneous
  Country: US (occurrence: US)
  Receive Date: 20190703
  Receipt Date: 20190726
  Transmission Date: 20191004
  Serious: Yes (Other)
  Sender: FDA-Public Use
  Company Number: US-PFIZER INC-2019283768

PATIENT
  Age: 68 Year
  Sex: Female
  Weight: 113.4 kg

DRUGS (3)
  1. LYRICA [Suspect]
     Active Substance: PREGABALIN
     Indication: ARTHRITIS
  2. LYRICA [Suspect]
     Active Substance: PREGABALIN
     Indication: FIBROMYALGIA
     Dosage: 200 MG, TWICE A DAY (MORNING AND NIGHT)
     Route: 048
     Dates: start: 201708
  3. LYRICA [Suspect]
     Active Substance: PREGABALIN
     Indication: PERIPHERAL NERVE INJURY

REACTIONS (4)
  - Insomnia [Unknown]
  - Drug effective for unapproved indication [Unknown]
  - Diabetes mellitus [Unknown]
  - Muscle spasms [Unknown]
